FAERS Safety Report 25935098 (Version 3)
Quarter: 2025Q4

REPORT INFORMATION
  Report Type: Spontaneous
  Country: US (occurrence: US)
  Receive Date: 20251017
  Receipt Date: 20251223
  Transmission Date: 20260118
  Serious: No
  Sender: TRIS PHARMA, INC.
  Company Number: US-TRIS PHARMA, INC.-25US012124

PATIENT
  Age: 6 Year

DRUGS (6)
  1. QUILLICHEW ER [Suspect]
     Active Substance: METHYLPHENIDATE HYDROCHLORIDE
     Indication: Attention deficit hyperactivity disorder
     Dosage: 20 MILLIGRAM
     Route: 061
  2. QUILLICHEW ER [Suspect]
     Active Substance: METHYLPHENIDATE HYDROCHLORIDE
     Dosage: 30 MILLIGRAM
     Route: 061
  3. QUILLICHEW ER [Suspect]
     Active Substance: METHYLPHENIDATE HYDROCHLORIDE
     Dosage: 20 MILLIGRAM
     Route: 061
  4. QUILLICHEW ER [Suspect]
     Active Substance: METHYLPHENIDATE HYDROCHLORIDE
     Dosage: 40 MILLIGRAM
     Route: 061
  5. VYVANSE [Concomitant]
     Active Substance: LISDEXAMFETAMINE DIMESYLATE
     Indication: Product used for unknown indication
     Dosage: UNK
  6. ADDERALL [Concomitant]
     Active Substance: AMPHETAMINE ASPARTATE\AMPHETAMINE SULFATE\DEXTROAMPHETAMINE SACCHARATE\DEXTROAMPHETAMINE SULFATE
     Indication: Product used for unknown indication
     Dosage: UNK

REACTIONS (8)
  - Enterobiasis [Not Recovered/Not Resolved]
  - Feeling abnormal [Unknown]
  - Product dose omission issue [Unknown]
  - Product taste abnormal [Unknown]
  - Product intolerance [Unknown]
  - Retching [Not Recovered/Not Resolved]
  - Therapeutic response shortened [Unknown]
  - Insomnia [Unknown]
